FAERS Safety Report 6537991-9 (Version None)
Quarter: 2010Q1

REPORT INFORMATION
  Report Type: 
  Country: None (occurrence: None)
  Receive Date: 20100112
  Receipt Date: 20100112
  Transmission Date: 20100710
  Serious: Yes (Other)
  Sender: FDA-Public Use
  Company Number: None

PATIENT
  Age: 26 Year
  Sex: Female
  Weight: 90.7194 kg

DRUGS (2)
  1. LEVAQUIN [Suspect]
     Indication: SINUSITIS
     Dosage: 750MG
     Dates: start: 20100101, end: 20100102
  2. PPSV [Concomitant]

REACTIONS (5)
  - AMNESIA [None]
  - CONVERSION DISORDER [None]
  - CONVULSION [None]
  - HEART RATE INCREASED [None]
  - UNRESPONSIVE TO STIMULI [None]
